FAERS Safety Report 21444918 (Version 3)
Quarter: 2024Q1

REPORT INFORMATION
  Report Type: Spontaneous
  Country: US (occurrence: US)
  Receive Date: 20221012
  Receipt Date: 20240208
  Transmission Date: 20240409
  Serious: Yes (Other)
  Sender: FDA-Public Use
  Company Number: US-GSKCCFUS-Case-01519310_AE-86247

PATIENT
  Sex: Male

DRUGS (1)
  1. TRELEGY ELLIPTA [Suspect]
     Active Substance: FLUTICASONE FUROATE\UMECLIDINIUM BROMIDE\VILANTEROL TRIFENATATE
     Indication: Chronic obstructive pulmonary disease
     Dosage: 1 PUFF(S), QD, 100/62.5/25
     Route: 055

REACTIONS (7)
  - Pneumonia [Unknown]
  - Dyspnoea [Recovered/Resolved]
  - Blood disorder [Unknown]
  - Device use error [Unknown]
  - Product dose omission issue [Unknown]
  - Product selection error [Unknown]
  - Product prescribing error [Unknown]
